FAERS Safety Report 9337899 (Version 1)
Quarter: 2013Q2

REPORT INFORMATION
  Report Type: Spontaneous
  Country: US (occurrence: US)
  Receive Date: 20130609
  Receipt Date: 20130609
  Transmission Date: 20140414
  Serious: No
  Sender: FDA-Public Use
  Company Number: US-009507513-1305USA016863

PATIENT
  Age: 58 Year
  Sex: Female

DRUGS (2)
  1. ZIOPTAN [Suspect]
     Route: 047
  2. RESTASIS [Interacting]
     Dosage: UNK
     Route: 047
     Dates: start: 201303

REACTIONS (6)
  - Abasia [Unknown]
  - Balance disorder [Unknown]
  - Vertigo [Unknown]
  - Feeling abnormal [Unknown]
  - Drug interaction [Unknown]
  - Syncope [Unknown]
